FAERS Safety Report 4983011-7 (Version None)
Quarter: 2006Q2

REPORT INFORMATION
  Report Type: 
  Country: None (occurrence: None)
  Receive Date: 20060420
  Receipt Date: 20060407
  Transmission Date: 20061013
  Serious: Yes (Other)
  Sender: FDA-Public Use
  Company Number: 2006049247

PATIENT
  Age: 62 Year
  Sex: Female
  Weight: 111.1313 kg

DRUGS (5)
  1. CELEBREX [Suspect]
     Indication: ARTHRITIS
     Dates: start: 19990101
  2. XANAX [Suspect]
     Indication: PANIC ATTACK
  3. ZOCOR [Concomitant]
  4. AVAPRO [Concomitant]
  5. IMIPRAMINE [Concomitant]

REACTIONS (4)
  - ECONOMIC PROBLEM [None]
  - HAND DEFORMITY [None]
  - MOVEMENT DISORDER [None]
  - PANIC ATTACK [None]
